FAERS Safety Report 15399383 (Version 1)
Quarter: 2018Q3

REPORT INFORMATION
  Report Type: Spontaneous
  Country: US (occurrence: US)
  Receive Date: 20180918
  Receipt Date: 20180918
  Transmission Date: 20181010
  Serious: No
  Sender: FDA-Public Use
  Company Number: US-AMGEN-USASP2018006584

PATIENT
  Age: 69 Year
  Sex: Male
  Weight: 62.59 kg

DRUGS (2)
  1. NEUPOGEN [Suspect]
     Active Substance: FILGRASTIM
     Indication: NEUTROPENIA
     Dosage: 480 MUG, AFTER CHEMO (480 MCG/0.8 ML)
     Route: 058
     Dates: start: 201711
  2. METHOTREXATE. [Concomitant]
     Active Substance: METHOTREXATE
     Indication: NEOPLASM MALIGNANT
     Dosage: UNK
     Route: 065

REACTIONS (3)
  - Incorrect disposal of product [Unknown]
  - Asthenia [Unknown]
  - Product storage error [Unknown]

NARRATIVE: CASE EVENT DATE: 2017
